FAERS Safety Report 18016532 (Version 3)
Quarter: 2020Q4

REPORT INFORMATION
  Report Type: Spontaneous
  Country: US (occurrence: US)
  Receive Date: 20200714
  Receipt Date: 20201118
  Transmission Date: 20210113
  Serious: No
  Sender: FDA-Public Use
  Company Number: US-GLAXOSMITHKLINE-US2020124825

PATIENT
  Sex: Female

DRUGS (3)
  1. ZEJULA [Suspect]
     Active Substance: NIRAPARIB
     Dosage: 100 MG
     Dates: start: 20200516
  2. ZEJULA [Suspect]
     Active Substance: NIRAPARIB
     Indication: OVARIAN CANCER
     Dosage: 1 DF, QD
     Dates: start: 20200515
  3. ZEJULA [Suspect]
     Active Substance: NIRAPARIB
     Dosage: UNK
     Dates: start: 2020

REACTIONS (4)
  - Constipation [Unknown]
  - Adverse drug reaction [Not Recovered/Not Resolved]
  - Incorrect dose administered [Unknown]
  - Illness [Unknown]
